FAERS Safety Report 11153407 (Version 2)
Quarter: 2015Q2

REPORT INFORMATION
  Report Type: Report from Study
  Country: DE (occurrence: DE)
  Receive Date: 20150602
  Receipt Date: 20150626
  Transmission Date: 20150821
  Serious: Yes (Hospitalization)
  Sender: FDA-Public Use
  Company Number: DE-ABBVIE-15K-062-1397966-00

PATIENT
  Age: 49 Year
  Sex: Male
  Weight: 80 kg

DRUGS (8)
  1. INSULINE [Concomitant]
     Active Substance: INSULIN NOS
     Indication: PRODUCT USED FOR UNKNOWN INDICATION
     Route: 058
  2. PREDNISOLONE. [Concomitant]
     Active Substance: PREDNISOLONE
     Dates: end: 20140904
  3. PREDNISOLONE. [Concomitant]
     Active Substance: PREDNISOLONE
     Dates: start: 20140904
  4. METHOTREXATE [Concomitant]
     Active Substance: METHOTREXATE
     Indication: PRODUCT USED FOR UNKNOWN INDICATION
     Dates: start: 200405, end: 201107
  5. LEVOTHYROXINE [Concomitant]
     Active Substance: LEVOTHYROXINE
     Indication: PRODUCT USED FOR UNKNOWN INDICATION
  6. PREDNISOLONE. [Concomitant]
     Active Substance: PREDNISOLONE
     Indication: PRODUCT USED FOR UNKNOWN INDICATION
  7. CALCIMAGON [Concomitant]
     Active Substance: CALCIUM
     Indication: PRODUCT USED FOR UNKNOWN INDICATION
  8. HUMIRA [Suspect]
     Active Substance: ADALIMUMAB
     Indication: RHEUMATOID ARTHRITIS
     Route: 065
     Dates: start: 200501, end: 201411

REACTIONS (17)
  - Weight increased [Unknown]
  - Bronchitis chronic [Unknown]
  - Bronchial metaplasia [Unknown]
  - Alveolitis [Unknown]
  - Cholestasis [Unknown]
  - Lung infiltration [Recovered/Resolved]
  - Interstitial lung disease [Unknown]
  - Interstitial lung disease [Unknown]
  - Dyspnoea exertional [Unknown]
  - Oedema peripheral [Unknown]
  - Interstitial lung disease [Recovered/Resolved]
  - Pulmonary oedema [Unknown]
  - Sputum discoloured [Unknown]
  - Nutritional condition abnormal [Unknown]
  - Organising pneumonia [Unknown]
  - Cough [Unknown]
  - Nocturia [Unknown]

NARRATIVE: CASE EVENT DATE: 201409
